FAERS Safety Report 5877369-4 (Version None)
Quarter: 2008Q3

REPORT INFORMATION
  Report Type: 
  Country: None (occurrence: None)
  Receive Date: 20080908
  Receipt Date: 20080826
  Transmission Date: 20090109
  Serious: Yes (Hospitalization)
  Sender: FDA-Public Use
  Company Number: DSA_32345_2008

PATIENT
  Sex: Female

DRUGS (2)
  1. LORAZEPAM [Suspect]
     Dosage: 30 MG 1X NOT THE PRESCRIBED AMOUNT ORAL)
     Route: 048
     Dates: start: 20080825, end: 20080825
  2. ZOLPIDEM TARTRATE [Suspect]
     Dosage: (100 MG 1X NOT THE PRESCRIBED AMOUNT ORAL)
     Route: 048
     Dates: start: 20080825, end: 20080825

REACTIONS (4)
  - MULTIPLE DRUG OVERDOSE INTENTIONAL [None]
  - SOMNOLENCE [None]
  - SUICIDE ATTEMPT [None]
  - TACHYCARDIA [None]
